FAERS Safety Report 11111886 (Version 1)
Quarter: 2015Q2

REPORT INFORMATION
  Report Type: Spontaneous
  Country: US (occurrence: None)
  Receive Date: 20150512
  Receipt Date: 20150512
  Transmission Date: 20150821
  Serious: Yes (Life-Threatening)
  Sender: FDA-Public Use
  Company Number: None

PATIENT
  Age: 46 Year
  Sex: Female

DRUGS (4)
  1. NOVOLOG [Suspect]
     Active Substance: INSULIN ASPART
     Indication: TYPE 1 DIABETES MELLITUS
     Dosage: 45 UNITS DAILY AS NEEDED GIVEN INTO/UNDER THE SKIN
     Route: 058
     Dates: start: 20150501, end: 20150511
  2. SYNTHROID [Concomitant]
     Active Substance: LEVOTHYROXINE SODIUM
  3. ONE DAILY VITAMIN [Concomitant]
  4. METOPORIL [Concomitant]

REACTIONS (7)
  - Palpitations [None]
  - Malaise [None]
  - Dry eye [None]
  - Fatigue [None]
  - Blood glucose fluctuation [None]
  - Headache [None]
  - Lethargy [None]

NARRATIVE: CASE EVENT DATE: 20150510
